FAERS Safety Report 11402671 (Version 1)
Quarter: 2015Q3

REPORT INFORMATION
  Report Type: Spontaneous
  Country: US (occurrence: US)
  Receive Date: 20150821
  Receipt Date: 20150821
  Transmission Date: 20151125
  Serious: Yes (Other)
  Sender: FDA-Public Use
  Company Number: US-ROCHE-1341227

PATIENT
  Age: 50 Year
  Sex: Male

DRUGS (3)
  1. RIBASPHERE [Concomitant]
     Active Substance: RIBAVIRIN
     Indication: HEPATITIS C
     Dosage: 5 TABS QD
     Route: 048
     Dates: start: 20140114, end: 20140128
  2. PEGASYS [Suspect]
     Active Substance: PEGINTERFERON ALFA-2A
     Indication: HEPATITIS C
     Route: 058
     Dates: start: 20140114, end: 20140128
  3. INCIVEK [Concomitant]
     Active Substance: TELAPREVIR
     Indication: HEPATITIS C
     Dosage: 2 TABS TID
     Route: 048
     Dates: start: 20140114, end: 20140128

REACTIONS (1)
  - Rash [Recovered/Resolved]

NARRATIVE: CASE EVENT DATE: 20140114
